FAERS Safety Report 6811549-6 (Version None)
Quarter: 2010Q3

REPORT INFORMATION
  Report Type: 
  Country: None (occurrence: None)
  Receive Date: 20100701
  Receipt Date: 20100624
  Transmission Date: 20110219
  Serious: Yes (Hospitalization)
  Sender: FDA-Public Use
  Company Number: US-BIOGENIDEC-2010BI016407

PATIENT
  Age: 44 Year
  Sex: Female

DRUGS (3)
  1. TYSABRI [Suspect]
     Indication: MULTIPLE SCLEROSIS
     Route: 042
     Dates: start: 20041101, end: 20050201
  2. TYSABRI [Suspect]
     Route: 042
     Dates: start: 20080509, end: 20080606
  3. TYSABRI [Suspect]
     Route: 042
     Dates: start: 20090130

REACTIONS (4)
  - DEVICE DISLOCATION [None]
  - DIZZINESS [None]
  - DYSURIA [None]
  - MULTIPLE SCLEROSIS [None]
